FAERS Safety Report 9512211 (Version 1)
Quarter: 2013Q3

REPORT INFORMATION
  Report Type: Spontaneous
  Country: US (occurrence: US)
  Receive Date: 20130910
  Receipt Date: 20130910
  Transmission Date: 20140515
  Serious: Yes (Other)
  Sender: FDA-Public Use
  Company Number: PHEH2013US018440

PATIENT
  Sex: Female
  Weight: 49.9 kg

DRUGS (17)
  1. ZOMETA [Suspect]
     Dosage: UNK
     Dates: end: 201303
  2. ZOMETA [Suspect]
     Dosage: UNK UKN, Q 6-8 WEEKS
     Route: 042
     Dates: start: 20130828
  3. CRESTOR [Suspect]
     Dosage: UNK UKN, UNK
  4. ARIMIDEX [Concomitant]
     Dosage: 1 MG, UNK
  5. FAMOTIDINE [Concomitant]
     Dosage: 20 MG, UNK
  6. TRAZODONE [Concomitant]
     Dosage: 50 MG, UNK
  7. VENLAFAXINE [Concomitant]
     Dosage: 150 MG, UNK
  8. VELCADE [Concomitant]
     Dosage: UNK UKN, UNK
  9. SYNTHROID [Concomitant]
     Dosage: UNK UKN, UNK
  10. ACYCLOVIR [Concomitant]
     Dosage: 400 MG, UNK
  11. ASA [Concomitant]
     Dosage: 325 MG, UNK
  12. PROBIOTICS [Concomitant]
     Dosage: UNK UKN, UNK
  13. WOMENS LAXATIVE [Concomitant]
     Dosage: UNK UKN, UNK
  14. ARTIFICIAL TEARS                   /00880201/ [Concomitant]
     Dosage: 0.5 %, UNK
  15. SENNA [Concomitant]
     Dosage: 8.6 MG, UNK
  16. OMEGA 3 [Concomitant]
     Dosage: UNK UKN, UNK
  17. CENTRUM SILVER [Concomitant]
     Dosage: UNK UKN, UNK

REACTIONS (11)
  - Neuropathy peripheral [Unknown]
  - Loose tooth [Unknown]
  - Feeling abnormal [Unknown]
  - Aphasia [Unknown]
  - Feeling jittery [Unknown]
  - Paraesthesia [Unknown]
  - Feeling hot [Unknown]
  - Nausea [Unknown]
  - Arthralgia [Unknown]
  - Fatigue [Unknown]
  - Bone pain [Unknown]
